FAERS Safety Report 7711022-7 (Version None)
Quarter: 2011Q3

REPORT INFORMATION
  Report Type: 
  Country: None (occurrence: None)
  Receive Date: 20110825
  Receipt Date: 20110812
  Transmission Date: 20111222
  Serious: Yes (Hospitalization)
  Sender: FDA-Public Use
  Company Number: US-MYLANLABS-2011S1017072

PATIENT
  Age: 43 Year
  Sex: Female

DRUGS (5)
  1. HEPARIN [Concomitant]
     Route: 065
  2. ASPIRIN [Concomitant]
     Route: 065
  3. CLOPIDOGREL [Concomitant]
     Route: 065
  4. PROPRANOLOL [Suspect]
     Indication: MIGRAINE
     Dosage: 60MG DAILY
     Route: 065
  5. NITROGLYCERIN [Suspect]
     Indication: CHEST PAIN
     Route: 065

REACTIONS (3)
  - PHAEOCHROMOCYTOMA [None]
  - BLOOD PRESSURE DECREASED [None]
  - CONGESTIVE CARDIOMYOPATHY [None]
